FAERS Safety Report 8154757-7 (Version None)
Quarter: 2012Q1

REPORT INFORMATION
  Report Type: 
  Country: None (occurrence: None)
  Receive Date: 20120221
  Receipt Date: 20120208
  Transmission Date: 20120608
  Serious: Yes (Other)
  Sender: FDA-Public Use
  Company Number: PHHY2012JP011463

PATIENT
  Sex: Female
  Weight: 56 kg

DRUGS (29)
  1. CLOZARIL [Suspect]
     Dosage: 150 MG
     Route: 048
     Dates: start: 20110704, end: 20110706
  2. CLOZARIL [Suspect]
     Dosage: 400 MG
     Route: 048
     Dates: start: 20110908, end: 20110928
  3. CLOZARIL [Suspect]
     Dosage: 300 MG
     Route: 048
     Dates: start: 20111020, end: 20111109
  4. RISPERIDONE [Suspect]
     Dosage: 9 MG, UNK
     Route: 048
     Dates: start: 20110616, end: 20110621
  5. RISPERIDONE [Suspect]
     Dosage: 6 MG, UNK
     Route: 048
     Dates: start: 20110622, end: 20110623
  6. AKINETON [Suspect]
     Indication: SCHIZOPHRENIA, PARANOID TYPE
     Dosage: 6 MG, UNK
     Route: 048
     Dates: start: 20110614, end: 20110622
  7. CLOZARIL [Suspect]
     Dosage: 75 MG
     Route: 048
     Dates: start: 20110624, end: 20110626
  8. CLOZARIL [Suspect]
     Dosage: 175 MG
     Route: 048
     Dates: start: 20110707, end: 20110711
  9. CLOZARIL [Suspect]
     Dosage: 500 MG
     Route: 048
     Dates: start: 20110727, end: 20110731
  10. RISPERIDONE [Suspect]
     Indication: SCHIZOPHRENIA, PARANOID TYPE
     Dosage: 12 MG
     Route: 048
     Dates: start: 20110614, end: 20110615
  11. AKINETON [Suspect]
     Dosage: 1 MG, UNK
     Route: 048
     Dates: start: 20110628, end: 20110716
  12. CLOZARIL [Suspect]
     Dosage: 125 MG
     Route: 048
     Dates: start: 20110701, end: 20110703
  13. CLOZARIL [Suspect]
     Dosage: 300 MG
     Route: 048
     Dates: start: 20111215
  14. CLOZARIL [Suspect]
     Dosage: 100 MG
     Route: 048
     Dates: start: 20110627, end: 20110630
  15. CLOZARIL [Suspect]
     Dosage: 300 MG
     Route: 048
     Dates: start: 20110717, end: 20110721
  16. CLOZARIL [Suspect]
     Dosage: 500 MG
     Route: 048
     Dates: start: 20110802, end: 20110907
  17. CLOZARIL [Suspect]
     Dosage: 350 MG
     Route: 048
     Dates: start: 20110929, end: 20111019
  18. LACTOMIN [Concomitant]
     Dosage: 3000 MG, UNK
     Route: 048
     Dates: start: 20110710, end: 20110710
  19. CLOZARIL [Suspect]
     Indication: SCHIZOPHRENIA, PARANOID TYPE
     Dosage: 12.5 MG
     Route: 048
     Dates: start: 20110614, end: 20110614
  20. CLOZARIL [Suspect]
     Dosage: 50 MG
     Route: 048
     Dates: start: 20110621, end: 20110623
  21. CLOZARIL [Suspect]
     Dosage: 600 MG
     Route: 048
     Dates: start: 20110801, end: 20110801
  22. CLOZARIL [Suspect]
     Dosage: 250 MG
     Route: 048
     Dates: start: 20111124, end: 20111214
  23. AKINETON [Suspect]
     Dosage: 2 MG, UNK
     Route: 048
     Dates: start: 20110623, end: 20110627
  24. CLOZARIL [Suspect]
     Dosage: 200 MG
     Route: 048
     Dates: start: 20110712, end: 20110716
  25. CLOZARIL [Suspect]
     Dosage: 400 MG
     Route: 048
     Dates: start: 20110722, end: 20110726
  26. CLOZARIL [Suspect]
     Dosage: 250 MG
     Route: 048
     Dates: start: 20111110, end: 20111116
  27. CLOZARIL [Suspect]
     Dosage: 200 MG
     Route: 048
     Dates: start: 20111117, end: 20111123
  28. CLOZARIL [Suspect]
     Dosage: 25 MG
     Route: 048
     Dates: start: 20110615, end: 20110620
  29. RISPERIDONE [Suspect]
     Dosage: 3 MG, UNK
     Route: 048
     Dates: start: 20110624, end: 20110706

REACTIONS (8)
  - HYPOTENSION [None]
  - LYMPHOCYTE COUNT DECREASED [None]
  - EOSINOPHIL COUNT INCREASED [None]
  - PLATELET COUNT INCREASED [None]
  - LOSS OF CONSCIOUSNESS [None]
  - ORTHOSTATIC HYPOTENSION [None]
  - RED BLOOD CELL COUNT DECREASED [None]
  - HEART RATE INCREASED [None]
